FAERS Safety Report 16964060 (Version 1)
Quarter: 2019Q4

REPORT INFORMATION
  Report Type: Spontaneous
  Country: US (occurrence: US)
  Receive Date: 20191026
  Receipt Date: 20191026
  Transmission Date: 20200122
  Serious: Yes (Hospitalization)
  Sender: FDA-Public Use
  Company Number: US-AMGEN-USASP2019173550

PATIENT
  Sex: Male

DRUGS (2)
  1. ARANESP [Suspect]
     Active Substance: DARBEPOETIN ALFA
     Indication: CHRONIC KIDNEY DISEASE
  2. ARANESP [Suspect]
     Active Substance: DARBEPOETIN ALFA
     Indication: SICKLE CELL ANAEMIA
     Dosage: UNK
     Route: 065
     Dates: start: 20191011

REACTIONS (2)
  - Dehydration [Not Recovered/Not Resolved]
  - Cough [Not Recovered/Not Resolved]

NARRATIVE: CASE EVENT DATE: 201910
